FAERS Safety Report 8073078-4 (Version None)
Quarter: 2012Q1

REPORT INFORMATION
  Report Type: 
  Country: None (occurrence: None)
  Receive Date: 20120126
  Receipt Date: 20120123
  Transmission Date: 20120608
  Serious: Yes (Hospitalization)
  Sender: FDA-Public Use
  Company Number: US-GILEAD-2012-0049738

PATIENT
  Sex: Male

DRUGS (3)
  1. LETAIRIS [Suspect]
     Indication: PRODUCT USED FOR UNKNOWN INDICATION
     Dosage: 10 MG, UNK
     Route: 048
  2. ADCIRCA [Concomitant]
  3. REMODULIN [Concomitant]

REACTIONS (4)
  - YELLOW SKIN [None]
  - DERMATITIS CONTACT [None]
  - DEVICE INFUSION ISSUE [None]
  - INFUSION SITE PRURITUS [None]
